FAERS Safety Report 21919775 (Version 1)
Quarter: 2023Q1

REPORT INFORMATION
  Report Type: Report from Study
  Country: DE (occurrence: DE)
  Receive Date: 20230127
  Receipt Date: 20230127
  Transmission Date: 20230417
  Serious: Yes (Hospitalization)
  Sender: FDA-Public Use
  Company Number: DE-MYLANLABS-2023M1007847

PATIENT
  Age: 16 Year

DRUGS (10)
  1. QUETIAPINE [Interacting]
     Active Substance: QUETIAPINE
     Indication: Autism spectrum disorder
     Dosage: UNK
     Route: 065
  2. QUETIAPINE [Interacting]
     Active Substance: QUETIAPINE
     Indication: Intellectual disability
  3. ARIPIPRAZOLE [Interacting]
     Active Substance: ARIPIPRAZOLE
     Indication: Autism spectrum disorder
     Dosage: UNK
     Route: 065
  4. ARIPIPRAZOLE [Interacting]
     Active Substance: ARIPIPRAZOLE
     Indication: Intellectual disability
  5. MELPERONE [Interacting]
     Active Substance: MELPERONE
     Indication: Autism spectrum disorder
     Dosage: UNK
     Route: 065
  6. MELPERONE [Interacting]
     Active Substance: MELPERONE
     Indication: Intellectual disability
  7. LORAZEPAM [Interacting]
     Active Substance: LORAZEPAM
     Indication: Autism spectrum disorder
     Dosage: UNK
     Route: 065
  8. LORAZEPAM [Interacting]
     Active Substance: LORAZEPAM
     Indication: Intellectual disability
  9. MELATONIN [Interacting]
     Active Substance: MELATONIN
     Indication: Autism spectrum disorder
     Dosage: UNK
     Route: 065
  10. MELATONIN [Interacting]
     Active Substance: MELATONIN
     Indication: Intellectual disability

REACTIONS (4)
  - Extrapyramidal disorder [Unknown]
  - Off label use [Unknown]
  - Drug interaction [Unknown]
  - Medication error [Unknown]
